FAERS Safety Report 16299421 (Version 1)
Quarter: 2019Q2

REPORT INFORMATION
  Report Type: Spontaneous
  Country: GB (occurrence: GB)
  Receive Date: 20190510
  Receipt Date: 20190510
  Transmission Date: 20190711
  Serious: Yes (Life-Threatening, Hospitalization)
  Sender: FDA-Public Use
  Company Number: GB-TEVA-2019-GB-1047772

PATIENT
  Age: 31 Year
  Sex: Female
  Weight: 76 kg

DRUGS (17)
  1. LORATADINE. [Concomitant]
     Active Substance: LORATADINE
  2. CYCLIZINE HYDROCHLORIDE [Concomitant]
     Active Substance: CYCLIZINE HYDROCHLORIDE
  3. THIAMINE. [Concomitant]
     Active Substance: THIAMINE
  4. RANITIDINE. [Concomitant]
     Active Substance: RANITIDINE
  5. CITALOPRAM [Concomitant]
     Active Substance: CITALOPRAM HYDROBROMIDE
  6. PABRINEX [Concomitant]
     Active Substance: ASCORBIC ACID\VITAMIN B COMPLEX
  7. ONDANSETRON HYDROCHLORIDE. [Suspect]
     Active Substance: ONDANSETRON HYDROCHLORIDE
     Indication: VOMITING
     Route: 042
     Dates: start: 20190330, end: 20190330
  8. MIRTAZAPINE. [Concomitant]
     Active Substance: MIRTAZAPINE
  9. PROPRANOLOL [Concomitant]
     Active Substance: PROPRANOLOL HYDROCHLORIDE
  10. CHLORDIAZEPOXIDE. [Concomitant]
     Active Substance: CHLORDIAZEPOXIDE
  11. CREON [Concomitant]
     Active Substance: PANCRELIPASE AMYLASE\PANCRELIPASE LIPASE\PANCRELIPASE PROTEASE
  12. ZOMORPH [Concomitant]
     Active Substance: MORPHINE SULFATE
  13. ACAMPROSATE [Concomitant]
     Active Substance: ACAMPROSATE
  14. PARACETAMOL [Concomitant]
     Active Substance: ACETAMINOPHEN
  15. VITAMIN B COMPLEX STRONG [Concomitant]
  16. OMEPRAZOLE. [Concomitant]
     Active Substance: OMEPRAZOLE
  17. FOLIC ACID. [Concomitant]
     Active Substance: FOLIC ACID

REACTIONS (3)
  - Torsade de pointes [Recovered/Resolved]
  - Loss of consciousness [Unknown]
  - Dizziness [Unknown]

NARRATIVE: CASE EVENT DATE: 20190330
